FAERS Safety Report 7166310-2 (Version None)
Quarter: 2010Q4

REPORT INFORMATION
  Report Type: 
  Country: None (occurrence: None)
  Receive Date: 20101216
  Receipt Date: 20101213
  Transmission Date: 20110411
  Serious: Yes (Death, Life-Threatening, Hospitalization)
  Sender: FDA-Public Use
  Company Number: CA-SANOFI-AVENTIS-2010SA071876

PATIENT
  Age: 66 Year
  Sex: Female
  Weight: 101 kg

DRUGS (19)
  1. TAXOTERE [Suspect]
     Indication: BREAST CANCER
     Route: 041
     Dates: start: 20101013, end: 20101013
  2. TAXOTERE [Suspect]
     Route: 041
     Dates: start: 20101104, end: 20101104
  3. TRASTUZUMAB [Concomitant]
     Indication: BREAST CANCER
     Dates: start: 20101013, end: 20101013
  4. TRASTUZUMAB [Concomitant]
     Dates: start: 20101104, end: 20101104
  5. METOPROLOL [Concomitant]
     Route: 048
     Dates: start: 20100801
  6. MICARDIS [Concomitant]
     Route: 048
     Dates: start: 20091001
  7. ROSUVASTATIN CALCIUM [Concomitant]
     Route: 048
     Dates: start: 20090901
  8. HYDROCHLOROTHIAZIDE [Concomitant]
     Route: 048
     Dates: start: 20080101
  9. VITAMIN D [Concomitant]
     Dosage: DOSE:1000 UNIT(S)
     Route: 048
  10. DEXAMETHASONE [Concomitant]
     Indication: PREMEDICATION
     Route: 048
     Dates: start: 20101013
  11. DEXAMETHASONE [Concomitant]
     Route: 048
     Dates: start: 20101104
  12. GRANISETRON HCL [Concomitant]
     Indication: PREMEDICATION
     Route: 048
     Dates: start: 20101013
  13. GRANISETRON HCL [Concomitant]
     Route: 048
     Dates: start: 20101104
  14. PROCHLORPERAZINE [Concomitant]
     Indication: PREMEDICATION
     Route: 048
     Dates: start: 20101013
  15. BUDESONIDE/FORMOTEROL [Concomitant]
     Route: 055
     Dates: start: 20100601
  16. SALBUTAMOL [Concomitant]
     Route: 055
  17. BRICANYL [Concomitant]
     Route: 055
  18. ECTOSONE [Concomitant]
  19. CLOTRIMAZOLE [Concomitant]
     Dates: start: 20101001

REACTIONS (2)
  - DEATH [None]
  - DYSPNOEA [None]
